FAERS Safety Report 8168201 (Version 6)
Quarter: 2014Q1

REPORT INFORMATION
  Report Type: Spontaneous
  Country: US (occurrence: US)
  Receive Date: 20111004
  Receipt Date: 20140110
  Transmission Date: 20141002
  Serious: Yes (Hospitalization)
  Sender: FDA-Public Use
  Company Number: US-GLAXOSMITHKLINE-B0752303A

PATIENT
  Age: 77 Year
  Sex: Male
  Weight: 105.5 kg

DRUGS (16)
  1. AVANDIA [Suspect]
     Indication: DIABETES MELLITUS
     Dosage: 8MG PER DAY
     Route: 048
     Dates: start: 2001
  2. LISINOPRIL [Concomitant]
  3. JANUVIA [Concomitant]
  4. NORCO [Concomitant]
  5. SOMA [Concomitant]
  6. GLYBURIDE [Concomitant]
  7. ACIPHEX [Concomitant]
  8. NORVASC [Concomitant]
  9. CLONAZEPAM [Concomitant]
  10. SKELAXIN [Concomitant]
  11. COREG [Concomitant]
  12. LIPITOR [Concomitant]
  13. FUROSEMIDE [Concomitant]
  14. PLAVIX [Concomitant]
  15. ASPIRIN [Concomitant]
  16. LASIX [Concomitant]

REACTIONS (7)
  - Cardiac failure congestive [Not Recovered/Not Resolved]
  - Ischaemic cardiomyopathy [Unknown]
  - Pneumonia bacterial [Unknown]
  - Infection [Unknown]
  - Lung disorder [Unknown]
  - Fluid retention [Unknown]
  - Coronary artery disease [Unknown]
